FAERS Safety Report 4673012-0 (Version None)
Quarter: 2005Q2

REPORT INFORMATION
  Report Type: 
  Country: None (occurrence: None)
  Receive Date: 20050523
  Receipt Date: 20050511
  Transmission Date: 20051028
  Serious: Yes (Congenital Anomaly)
  Sender: FDA-Public Use
  Company Number: 2005056420

PATIENT
  Sex: Male
  Weight: 1.4 kg

DRUGS (6)
  1. VIRACEPT [Suspect]
     Indication: HIV INFECTION
     Dosage: 2500 DAILY, ORAL; 2500 MG DAILY, ORAL
     Route: 048
     Dates: start: 20031110, end: 20050228
  2. VIRACEPT [Suspect]
     Indication: HIV INFECTION
     Dosage: 2500 DAILY, ORAL; 2500 MG DAILY, ORAL
     Route: 048
     Dates: start: 20050301, end: 20050417
  3. COMBIVIR [Suspect]
     Indication: HIV INFECTION
     Dosage: 900 MG DAILY, ORAL
     Route: 048
     Dates: start: 20031015
  4. KALETRA [Suspect]
     Indication: HIV INFECTION
     Dosage: 6 DAILY, ORAL; 6 DAILY, ORAL
     Route: 048
     Dates: start: 20050228, end: 20050301
  5. KALETRA [Suspect]
     Indication: HIV INFECTION
     Dosage: 6 DAILY, ORAL; 6 DAILY, ORAL
     Route: 048
     Dates: start: 20050417
  6. SUSTIVA [Suspect]
     Indication: HIV INFECTION
     Dosage: 600 MG DAILY, ORAL
     Route: 048
     Dates: start: 20050417, end: 20050417

REACTIONS (5)
  - BLADDER HYPERTROPHY [None]
  - DRUG EXPOSURE DURING PREGNANCY [None]
  - HYDRONEPHROSIS [None]
  - PREMATURE BABY [None]
  - URETHRAL DISORDER [None]
